FAERS Safety Report 24048921 (Version 1)
Quarter: 2024Q3

REPORT INFORMATION
  Report Type: Spontaneous
  Country: US (occurrence: US)
  Receive Date: 20240704
  Receipt Date: 20240704
  Transmission Date: 20241016
  Serious: Yes (Other)
  Sender: INFORLIFE
  Company Number: US-INFO-20240187

PATIENT
  Age: 73 Year
  Sex: Male

DRUGS (2)
  1. NOREPINEPHRINE [Suspect]
     Active Substance: NOREPINEPHRINE\NOREPINEPHRINE BITARTRATE
     Dosage: EXPIRY DATE: AUG-2025 ()
  2. DEXMEDETOMIDINE [Concomitant]
     Active Substance: DEXMEDETOMIDINE

REACTIONS (2)
  - Product packaging issue [Unknown]
  - No adverse event [Unknown]
